FAERS Safety Report 18904383 (Version 1)
Quarter: 2021Q1

REPORT INFORMATION
  Report Type: Spontaneous
  Country: US (occurrence: US)
  Receive Date: 20210217
  Receipt Date: 20210217
  Transmission Date: 20210420
  Serious: Yes (Other)
  Sender: FDA-Public Use
  Company Number: US-REGENERON PHARMACEUTICALS, INC.-2020-26797

PATIENT

DRUGS (2)
  1. PRALUENT [Suspect]
     Active Substance: ALIROCUMAB
     Indication: HYPERCHOLESTEROLAEMIA
     Dosage: 75 MILLIGRAM, QOW
     Route: 058
  2. LEVOTHYROXINE. [Concomitant]
     Active Substance: LEVOTHYROXINE
     Indication: AUTOIMMUNE THYROIDITIS
     Dosage: 200 UG, QD
     Route: 048

REACTIONS (8)
  - Rash maculo-papular [Recovered/Resolved]
  - Blindness [Recovered/Resolved]
  - Weight decreased [Recovered/Resolved]
  - Choroidal effusion [Recovered/Resolved]
  - Ocular hyperaemia [Recovered/Resolved]
  - Sinusitis [Recovered/Resolved]
  - Scleritis [Recovered/Resolved]
  - Eye pain [Recovered/Resolved]
